FAERS Safety Report 4293937-8 (Version None)
Quarter: 2004Q1

REPORT INFORMATION
  Report Type: 
  Country: None (occurrence: None)
  Receive Date: 20040210
  Receipt Date: 20040203
  Transmission Date: 20041129
  Serious: Yes (Disabling, Other)
  Sender: FDA-Public Use
  Company Number: GBWYE209808JUL03

PATIENT
  Age: 35 Year
  Sex: Male

DRUGS (3)
  1. EFFEXOR [Suspect]
     Indication: DEPRESSION
     Dosage: 150 MG 1X PER 1 DAY ORAL
     Route: 048
     Dates: start: 20030520, end: 20030728
  2. EFFEXOR [Suspect]
     Indication: PANIC ATTACK
     Dosage: 150 MG 1X PER 1 DAY ORAL
     Route: 048
     Dates: start: 20030520, end: 20030728
  3. ALCOHOL (ETHANOL, ,0) [Suspect]
     Dosage: 5 PINTS OF BEER ORAL
     Route: 048

REACTIONS (3)
  - ALCOHOL INTERACTION [None]
  - PHYSICAL ASSAULT [None]
  - PSYCHOTIC DISORDER [None]
